FAERS Safety Report 11522421 (Version 1)
Quarter: 2015Q3

REPORT INFORMATION
  Report Type: Spontaneous
  Country: US (occurrence: US)
  Receive Date: 20150903
  Receipt Date: 20150903
  Transmission Date: 20151125
  Serious: No
  Sender: FDA-Public Use
  Company Number: US-ELI_LILLY_AND_COMPANY-US201301003644

PATIENT
  Sex: Female

DRUGS (4)
  1. CYMBALTA [Suspect]
     Active Substance: DULOXETINE HYDROCHLORIDE
     Indication: BACK PAIN
     Dosage: 30 MG, BID
     Dates: start: 20130107
  2. NEXIUM [Concomitant]
     Active Substance: ESOMEPRAZOLE MAGNESIUM
  3. HYZAAR [Concomitant]
     Active Substance: HYDROCHLOROTHIAZIDE\LOSARTAN POTASSIUM
  4. ALKA SELTZER                       /00057201/ [Concomitant]

REACTIONS (13)
  - Diarrhoea [Unknown]
  - Presyncope [Unknown]
  - Fatigue [Unknown]
  - Vomiting [Unknown]
  - Sneezing [Unknown]
  - Decreased appetite [Unknown]
  - Dysuria [Unknown]
  - Hyperhidrosis [Unknown]
  - Blood pressure increased [Unknown]
  - Dizziness [Unknown]
  - Chills [Unknown]
  - Dysgeusia [Unknown]
  - Headache [Unknown]
